FAERS Safety Report 9339505 (Version 2)
Quarter: 2013Q3

REPORT INFORMATION
  Report Type: Report from Study
  Country: DE (occurrence: DE)
  Receive Date: 20130610
  Receipt Date: 20130731
  Transmission Date: 20140515
  Serious: Yes (Hospitalization)
  Sender: FDA-Public Use
  Company Number: DE-PFIZER INC-2013168276

PATIENT
  Age: 69 Year
  Sex: Male

DRUGS (6)
  1. SUTENT [Suspect]
     Dosage: UNK
     Dates: start: 20110505, end: 20110528
  2. BISOPROLOL [Concomitant]
     Dosage: 10 UNK, DAILY
     Dates: start: 19980101
  3. CARMEN [Concomitant]
     Dosage: 20 UNK, DAILY
     Dates: start: 20050327
  4. DELIX [Concomitant]
     Dosage: 5/25, DAILY
     Dates: start: 20050327
  5. ASS [Concomitant]
     Dosage: 100 UNK, DAILY
     Dates: start: 20071108
  6. KEPPRA [Concomitant]
     Dosage: 500 MG, UNK

REACTIONS (1)
  - Skin reaction [Recovered/Resolved]
